FAERS Safety Report 9243223 (Version 2)
Quarter: 2013Q2

REPORT INFORMATION
  Report Type: Spontaneous
  Country: US (occurrence: US)
  Receive Date: 20130419
  Receipt Date: 20130515
  Transmission Date: 20140414
  Serious: No
  Sender: FDA-Public Use
  Company Number: US-ASTRAZENECA-2013SE22692

PATIENT
  Age: 48 Year
  Sex: Female

DRUGS (3)
  1. SYMBICORT [Suspect]
     Indication: ASTHMA
     Dosage: 160MCG/4.5MCG, 2 PUFFS DAILY
     Route: 055
  2. SYMBICORT [Suspect]
     Indication: ASTHMA
     Dosage: 160MCG/4.5MCG , 2 PUFFS BID
     Route: 055
     Dates: start: 20130309
  3. ALBUTERAL [Suspect]

REACTIONS (5)
  - Sleep disorder due to general medical condition, insomnia type [Unknown]
  - Dyspnoea [Unknown]
  - Dyspnoea [Unknown]
  - Cough [Unknown]
  - Intentional drug misuse [Unknown]
